FAERS Safety Report 6216683-X (Version None)
Quarter: 2009Q2

REPORT INFORMATION
  Report Type: 
  Country: None (occurrence: None)
  Receive Date: 20090604
  Receipt Date: 20090604
  Transmission Date: 20091009
  Serious: Yes (Other)
  Sender: FDA-Public Use
  Company Number: None

PATIENT
  Sex: Male

DRUGS (3)
  1. VALPROATE SODIUM [Suspect]
     Indication: ASTROCYTOMA
     Dosage: 500
  2. VALPROATE SODIUM [Suspect]
     Indication: BRAIN MASS
     Dosage: 500
  3. VALPROATE SODIUM [Suspect]
     Indication: EPILEPSY
     Dosage: 500

REACTIONS (1)
  - CONVULSION [None]
